FAERS Safety Report 16184496 (Version 1)
Quarter: 2019Q2

REPORT INFORMATION
  Report Type: Spontaneous
  Country: US (occurrence: US)
  Receive Date: 20190411
  Receipt Date: 20190411
  Transmission Date: 20190711
  Serious: Yes (Hospitalization, Other)
  Sender: FDA-Public Use
  Company Number: US-PFIZER INC-2019152154

PATIENT
  Age: 67 Year
  Sex: Female

DRUGS (2)
  1. OTEZLA [Suspect]
     Active Substance: APREMILAST
     Dosage: 30 MG, 2X/DAY
     Route: 048
     Dates: start: 20180131
  2. GABAPENTIN. [Suspect]
     Active Substance: GABAPENTIN
     Dosage: UNK

REACTIONS (8)
  - Tendon disorder [Unknown]
  - Nausea [Unknown]
  - Angioedema [Unknown]
  - Malaise [Unknown]
  - Feeling abnormal [Unknown]
  - Finger deformity [Unknown]
  - Arthralgia [Unknown]
  - Tinnitus [Unknown]
